FAERS Safety Report 6934449-X (Version None)
Quarter: 2010Q3

REPORT INFORMATION
  Report Type: 
  Country: None (occurrence: None)
  Receive Date: 20100820
  Receipt Date: 20100809
  Transmission Date: 20110219
  Serious: Yes (Hospitalization, Other)
  Sender: FDA-Public Use
  Company Number: CO-ELI_LILLY_AND_COMPANY-CO201008002548

PATIENT
  Age: 57 Year
  Sex: Female

DRUGS (2)
  1. HUMALOG MIX 50/50 [Suspect]
     Indication: TYPE 2 DIABETES MELLITUS
     Dosage: 16 IU, OTHER
     Route: 058
     Dates: start: 20100331
  2. HUMALOG MIX 50/50 [Suspect]
     Dosage: 16 IU, EACH EVENING
     Route: 058
     Dates: start: 20100331

REACTIONS (3)
  - CARDIAC VALVE DISEASE [None]
  - HOSPITALISATION [None]
  - INFARCTION [None]
